FAERS Safety Report 9388838 (Version 2)
Quarter: 2013Q3

REPORT INFORMATION
  Report Type: Spontaneous
  Country: US (occurrence: US)
  Receive Date: 20130708
  Receipt Date: 20130809
  Transmission Date: 20140515
  Serious: No
  Sender: FDA-Public Use
  Company Number: US-009507513-1307USA001219

PATIENT
  Age: 67 Year
  Sex: Female
  Weight: 76.19 kg

DRUGS (2)
  1. PROVENTIL [Suspect]
     Indication: BRONCHITIS
     Dosage: 2 PUFFS FOUR TIMES DAILY, AS NEEDED ORAL INHALATION
     Route: 055
     Dates: start: 20130629
  2. PROVENTIL [Suspect]
     Indication: TRACHEITIS

REACTIONS (3)
  - Cough [Recovered/Resolved]
  - Dyspnoea [Recovered/Resolved]
  - Product quality issue [Unknown]
